FAERS Safety Report 10439873 (Version 1)
Quarter: 2014Q3

REPORT INFORMATION
  Report Type: Spontaneous
  Country: US (occurrence: US)
  Receive Date: 20140908
  Receipt Date: 20140908
  Transmission Date: 20150326
  Serious: No
  Sender: FDA-Public Use
  Company Number: US-BRISTOL-MYERS SQUIBB COMPANY-20670014

PATIENT
  Age: 15 Year
  Sex: Female

DRUGS (11)
  1. TOPAMAX [Concomitant]
     Active Substance: TOPIRAMATE
     Indication: HEADACHE
  2. ABILIFY [Suspect]
     Active Substance: ARIPIPRAZOLE
     Dosage: REDUCED TO 2 MG
  3. SEROQUEL [Interacting]
     Active Substance: QUETIAPINE FUMARATE
     Dosage: 1DF=150MG IN AM,250MG AT NIGHT
  4. CLONIDINE. [Concomitant]
     Active Substance: CLONIDINE
     Dosage: QHS
  5. ZYRTEC [Concomitant]
     Active Substance: CETIRIZINE HYDROCHLORIDE
     Dosage: QHS
  6. CONCERTA [Concomitant]
     Active Substance: METHYLPHENIDATE HYDROCHLORIDE
     Dosage: IN AM
  7. NEXIUM [Concomitant]
     Active Substance: ESOMEPRAZOLE MAGNESIUM
     Dosage: IN AM
  8. SINGULAIR [Concomitant]
     Active Substance: MONTELUKAST SODIUM
     Dosage: QHS
  9. BUSPAR [Concomitant]
     Active Substance: BUSPIRONE HYDROCHLORIDE
  10. SOFLAX [Concomitant]
     Active Substance: DOCUSATE
  11. COGENTIN [Concomitant]
     Active Substance: BENZTROPINE MESYLATE

REACTIONS (2)
  - Oculogyric crisis [Unknown]
  - Drug interaction [Unknown]
